FAERS Safety Report 6090244-8 (Version None)
Quarter: 2009Q1

REPORT INFORMATION
  Report Type: 
  Country: None (occurrence: None)
  Receive Date: 20090224
  Receipt Date: 20081210
  Transmission Date: 20090719
  Serious: No
  Sender: FDA-Public Use
  Company Number: US-ABBOTT-08P-163-0492492-00

PATIENT
  Sex: Female

DRUGS (5)
  1. SIMCOR [Suspect]
     Indication: DRUG USE FOR UNKNOWN INDICATION
     Dosage: 500/20 MG
     Dates: start: 20081201
  2. ALTACE [Concomitant]
     Indication: DRUG USE FOR UNKNOWN INDICATION
  3. REQUIP [Concomitant]
     Indication: DRUG USE FOR UNKNOWN INDICATION
  4. PERIACTIN [Concomitant]
     Indication: DRUG USE FOR UNKNOWN INDICATION
  5. ASPIRIN [Concomitant]
     Indication: DRUG USE FOR UNKNOWN INDICATION

REACTIONS (6)
  - APHASIA [None]
  - BLINDNESS [None]
  - DIZZINESS [None]
  - FLUSHING [None]
  - MICTURITION DISORDER [None]
  - NAUSEA [None]
